FAERS Safety Report 25605277 (Version 1)
Quarter: 2025Q3

REPORT INFORMATION
  Report Type: Spontaneous
  Country: EU (occurrence: EU)
  Receive Date: 20250725
  Receipt Date: 20250725
  Transmission Date: 20251021
  Serious: Yes (Hospitalization)
  Sender: MYLAN
  Company Number: None

PATIENT
  Age: 25 Year
  Sex: Female

DRUGS (12)
  1. TRAMADOL [Suspect]
     Active Substance: TRAMADOL
     Indication: Product used for unknown indication
     Dosage: 1200 MILLIGRAM, QD (UP TO 1200 MG/DAY)
     Dates: end: 202504
  2. TRAMADOL [Suspect]
     Active Substance: TRAMADOL
     Dosage: 1200 MILLIGRAM, QD (UP TO 1200 MG/DAY)
     Route: 065
     Dates: end: 202504
  3. TRAMADOL [Suspect]
     Active Substance: TRAMADOL
     Dosage: 1200 MILLIGRAM, QD (UP TO 1200 MG/DAY)
     Route: 065
     Dates: end: 202504
  4. TRAMADOL [Suspect]
     Active Substance: TRAMADOL
     Dosage: 1200 MILLIGRAM, QD (UP TO 1200 MG/DAY)
     Dates: end: 202504
  5. PREGABALIN [Suspect]
     Active Substance: PREGABALIN
     Indication: Product used for unknown indication
  6. PREGABALIN [Suspect]
     Active Substance: PREGABALIN
     Route: 048
  7. PREGABALIN [Suspect]
     Active Substance: PREGABALIN
     Route: 048
  8. PREGABALIN [Suspect]
     Active Substance: PREGABALIN
  9. NITRIC OXIDE [Suspect]
     Active Substance: NITRIC OXIDE
     Indication: Product used for unknown indication
  10. NITRIC OXIDE [Suspect]
     Active Substance: NITRIC OXIDE
     Route: 055
  11. NITRIC OXIDE [Suspect]
     Active Substance: NITRIC OXIDE
     Route: 055
  12. NITRIC OXIDE [Suspect]
     Active Substance: NITRIC OXIDE

REACTIONS (4)
  - Substance dependence [Unknown]
  - Paraesthesia [Recovering/Resolving]
  - Cognitive disorder [Recovering/Resolving]
  - Drug withdrawal maintenance therapy [Unknown]

NARRATIVE: CASE EVENT DATE: 20250301
